FAERS Safety Report 19087967 (Version 1)
Quarter: 2021Q2

REPORT INFORMATION
  Report Type: Spontaneous
  Country: TN (occurrence: TN)
  Receive Date: 20210402
  Receipt Date: 20210402
  Transmission Date: 20210717
  Serious: Yes (Other)
  Sender: FDA-Public Use
  Company Number: TN-AZURITY PHARMACEUTICALS, INC.-2021AZY00032

PATIENT
  Age: 77 Year
  Sex: Male

DRUGS (3)
  1. GENTAMICIN. [Concomitant]
     Active Substance: GENTAMICIN
     Indication: ENDOCARDITIS
     Route: 065
  2. AMPICILLIN [Concomitant]
     Active Substance: AMPICILLIN
     Indication: ENDOCARDITIS
     Route: 065
  3. VANCOMYCIN HYDROCHLORIDE. [Suspect]
     Active Substance: VANCOMYCIN HYDROCHLORIDE
     Indication: ENDOCARDITIS
     Route: 065

REACTIONS (1)
  - Linear IgA disease [Recovered/Resolved]
